FAERS Safety Report 8514867-9 (Version None)
Quarter: 2012Q3

REPORT INFORMATION
  Report Type: 
  Country: None (occurrence: None)
  Receive Date: 20120711
  Receipt Date: 20120711
  Transmission Date: 20120928
  Serious: Yes (Hospitalization)
  Sender: FDA-Public Use
  Company Number: None

PATIENT
  Age: 59 Year
  Sex: Male
  Weight: 74.5 kg

DRUGS (2)
  1. ARIPIPRAZOLE [Suspect]
     Indication: DEPRESSION
     Dosage: 2.5 MG EVERY DAY PO
     Route: 048
     Dates: start: 20120509
  2. TRAZODONE HYDROCHLORIDE [Suspect]
     Indication: INSOMNIA
     Dosage: 200 MG PRN PO
     Route: 048
     Dates: start: 20050623, end: 20120601

REACTIONS (1)
  - PRIAPISM [None]
